FAERS Safety Report 15158697 (Version 1)
Quarter: 2018Q3

REPORT INFORMATION
  Report Type: Spontaneous
  Country: US (occurrence: US)
  Receive Date: 20180718
  Receipt Date: 20180718
  Transmission Date: 20181010
  Serious: No
  Sender: FDA-Public Use
  Company Number: US-SA-2018SA163745

PATIENT
  Sex: Female

DRUGS (4)
  1. ARAVA [Suspect]
     Active Substance: LEFLUNOMIDE
  2. TYLENOL 8HR [Suspect]
     Active Substance: ACETAMINOPHEN
     Dosage: UNK UNK, UNK
     Route: 065
  3. ENBREL [Suspect]
     Active Substance: ETANERCEPT
     Dosage: UNK UNK, UNK
     Route: 065
  4. METHOTREXATE. [Suspect]
     Active Substance: METHOTREXATE
     Dosage: UNK UNK, UNK
     Route: 065

REACTIONS (4)
  - Anxiety [Unknown]
  - Drug ineffective [Unknown]
  - Drug intolerance [Unknown]
  - Nausea [Unknown]
